FAERS Safety Report 15013055 (Version 1)
Quarter: 2018Q2

REPORT INFORMATION
  Report Type: Spontaneous
  Country: US (occurrence: US)
  Receive Date: 20180614
  Receipt Date: 20180614
  Transmission Date: 20180711
  Serious: No
  Sender: FDA-Public Use
  Company Number: US-ALEXION PHARMACEUTICALS INC.-A201807335

PATIENT
  Sex: Female
  Weight: 58.4 kg

DRUGS (1)
  1. SOLIRIS [Suspect]
     Active Substance: ECULIZUMAB
     Indication: PAROXYSMAL NOCTURNAL HAEMOGLOBINURIA
     Dosage: 900 MG, EVERY OTHER WEEK
     Route: 065

REACTIONS (3)
  - Feeling abnormal [Recovered/Resolved]
  - Drug ineffective [Unknown]
  - Headache [Unknown]
